FAERS Safety Report 9505681 (Version 1)
Quarter: 2013Q1

REPORT INFORMATION
  Report Type: Spontaneous
  Country: US (occurrence: None)
  Receive Date: 20130220
  Receipt Date: 20130220
  Transmission Date: 20140127
  Serious: No
  Sender: FDA-Public Use
  Company Number: 1000040049

PATIENT
  Age: 16 Year
  Sex: Female

DRUGS (2)
  1. VIIBRYD (VILAZODONE HYDROCHLORIDE) [Suspect]
     Indication: ANXIETY
     Dates: start: 201205
  2. TRAZODONE (TRAZODONE) [Suspect]
     Indication: INSOMNIA
     Dates: start: 20121022, end: 20121022

REACTIONS (6)
  - Pruritus generalised [None]
  - Insomnia [None]
  - Decreased appetite [None]
  - Hypersomnia [None]
  - Feeling abnormal [None]
  - Off label use [None]
